FAERS Safety Report 9333624 (Version 2)
Quarter: 2013Q3

REPORT INFORMATION
  Report Type: Report from Study
  Country: CA (occurrence: CA)
  Receive Date: 20130606
  Receipt Date: 20130906
  Transmission Date: 20140515
  Serious: Yes (Hospitalization, Other)
  Sender: FDA-Public Use
  Company Number: CA-ABBOTT-13P-028-1095929-00

PATIENT
  Age: 51 Year
  Sex: Male
  Weight: 75 kg

DRUGS (13)
  1. HUMIRA [Suspect]
     Indication: CROHN^S DISEASE
     Dosage: BASELINE
     Route: 058
     Dates: start: 20090529, end: 20090529
  2. HUMIRA [Suspect]
     Dosage: WEEK 2
     Route: 058
  3. HUMIRA [Suspect]
     Route: 058
     Dates: end: 20130320
  4. AZATHIOPRINE [Concomitant]
     Indication: CROHN^S DISEASE
     Dosage: HIGHEST MAIN DOSE 150MG
     Dates: end: 200512
  5. MELATONIN [Concomitant]
     Indication: HEADACHE
     Dates: start: 20090220
  6. PANTOPRAZOLE [Concomitant]
     Indication: GASTROOESOPHAGEAL REFLUX DISEASE
     Dates: start: 20090220
  7. TRIFEREXX [Concomitant]
     Indication: ANAEMIA
     Dates: start: 20080224
  8. TYLENOL ARTHRITIS [Concomitant]
     Indication: ARTHRITIS
     Dates: start: 200707
  9. TRAMADOL [Concomitant]
     Indication: ARTHRITIS
     Dates: start: 200707
  10. DEMEROL [Concomitant]
     Indication: PAIN
     Dates: start: 2005
  11. BUDESONIDE [Concomitant]
     Indication: CROHN^S DISEASE
     Dates: start: 201201
  12. LOSEC [Concomitant]
     Indication: GASTROOESOPHAGEAL REFLUX DISEASE
     Dates: start: 20091116
  13. IRON INFUSION [Concomitant]
     Indication: BLOOD IRON DECREASED
     Dates: start: 201205

REACTIONS (1)
  - Infection parasitic [Recovered/Resolved]
